FAERS Safety Report 14578273 (Version 1)
Quarter: 2018Q1

REPORT INFORMATION
  Report Type: Spontaneous
  Country: US (occurrence: US)
  Receive Date: 20180226
  Receipt Date: 20180226
  Transmission Date: 20180509
  Serious: No
  Sender: FDA-Public Use
  Company Number: None

PATIENT
  Age: 30 Year
  Sex: Male
  Weight: 70.9 kg

DRUGS (1)
  1. OXCARBAZEPINE. [Suspect]
     Active Substance: OXCARBAZEPINE
     Indication: SEIZURE
     Route: 048
     Dates: start: 20171117, end: 20180215

REACTIONS (2)
  - Hepatic enzyme increased [None]
  - Rhabdomyolysis [None]

NARRATIVE: CASE EVENT DATE: 20180216
